FAERS Safety Report 16777004 (Version 13)
Quarter: 2024Q2

REPORT INFORMATION
  Report Type: Spontaneous
  Country: US (occurrence: US)
  Receive Date: 20190905
  Receipt Date: 20240530
  Transmission Date: 20240715
  Serious: Yes (Hospitalization, Other)
  Sender: FDA-Public Use
  Company Number: US-PFIZER INC-2019223955

PATIENT
  Age: 77 Year
  Sex: Female

DRUGS (4)
  1. BOSULIF [Suspect]
     Active Substance: BOSUTINIB MONOHYDRATE
     Indication: Chronic myeloid leukaemia
     Dosage: 2 TABLETS BY MOUTH TWICE A DAY
     Route: 048
  2. BOSULIF [Suspect]
     Active Substance: BOSUTINIB MONOHYDRATE
     Dosage: TAKE 1 TABLET ONE TIME EACH DAY WITH DINNER. SWALLOW WHOLE
     Route: 048
  3. BOSULIF [Suspect]
     Active Substance: BOSUTINIB MONOHYDRATE
     Dosage: TWO TABLETS MORNING, ONE EVERY EVENING
     Route: 048
  4. BOSULIF [Suspect]
     Active Substance: BOSUTINIB MONOHYDRATE
     Dosage: BOSULIF FOR 4 1/2.

REACTIONS (14)
  - Nausea [Unknown]
  - Vomiting [Unknown]
  - Fall [Unknown]
  - Aortic surgery [Unknown]
  - Off label use [Unknown]
  - Diarrhoea [Unknown]
  - Hypersensitivity [Unknown]
  - Urticaria [Unknown]
  - Pruritus [Unknown]
  - Lip swelling [Unknown]
  - Hypoaesthesia oral [Unknown]
  - Feeling hot [Unknown]
  - Asthenia [Unknown]
  - Immune system disorder [Unknown]
